FAERS Safety Report 4285285-7 (Version None)
Quarter: 2004Q1

REPORT INFORMATION
  Report Type: 
  Country: None (occurrence: None)
  Receive Date: 20040202
  Receipt Date: 20040123
  Transmission Date: 20041129
  Serious: Yes (Other)
  Sender: FDA-Public Use
  Company Number: 200308800

PATIENT
  Age: 56 Year
  Sex: Male

DRUGS (6)
  1. STREPTASE [Suspect]
     Indication: MYOCARDIAL INFARCTION
     Dosage: 1.5 MIU DAILY IV
     Route: 042
     Dates: start: 20030811, end: 20030811
  2. ASPIRIN [Suspect]
     Indication: MYOCARDIAL INFARCTION
     Dosage: 150 MG DAILY PO
     Route: 048
     Dates: start: 20030811
  3. ENOXAPARIN OR PLACEBO VS HEPARIN OR PLACEBO [Suspect]
     Indication: MYOCARDIAL INFARCTION
     Dosage: IV
     Route: 042
     Dates: start: 20030811, end: 20030814
  4. ATENOLOL [Concomitant]
  5. ENALAPRIL [Concomitant]
  6. ISMO [Concomitant]

REACTIONS (1)
  - THROMBOCYTOPENIA [None]
